FAERS Safety Report 7017828-4 (Version None)
Quarter: 2010Q3

REPORT INFORMATION
  Report Type: 
  Country: None (occurrence: None)
  Receive Date: 20100927
  Receipt Date: 20100927
  Transmission Date: 20110219
  Serious: Yes (Hospitalization)
  Sender: FDA-Public Use
  Company Number: None

PATIENT
  Sex: Female
  Weight: 63.5 kg

DRUGS (1)
  1. CISPLATIN [Suspect]
     Dosage: 513 MG
     Dates: end: 20100831

REACTIONS (1)
  - DEEP VEIN THROMBOSIS [None]
